FAERS Safety Report 18149876 (Version 2)
Quarter: 2020Q3

REPORT INFORMATION
  Report Type: Report from Study
  Country: None (occurrence: KR)
  Receive Date: 20200814
  Receipt Date: 20200818
  Transmission Date: 20201103
  Serious: Yes (Hospitalization)
  Sender: FDA-Public Use
  Company Number: KR-ABBVIE-20K-090-3524110-00

PATIENT
  Sex: Male
  Weight: 62 kg

DRUGS (9)
  1. TROPHERINE [Concomitant]
     Indication: OPEN GLOBE INJURY
     Route: 047
     Dates: start: 20200329
  2. LIPITOR [Concomitant]
     Active Substance: ATORVASTATIN CALCIUM
     Indication: DYSLIPIDAEMIA
     Route: 048
     Dates: start: 2010
  3. ESOMEZOLE [Concomitant]
     Dates: start: 20200702, end: 20200706
  4. PREDNILONE [Concomitant]
     Indication: OPEN GLOBE INJURY
     Route: 047
     Dates: start: 20200326
  5. ESOMEZOLE [Concomitant]
     Indication: PROPHYLAXIS
     Route: 048
     Dates: start: 20200507, end: 20200507
  6. NORVASC [Concomitant]
     Active Substance: AMLODIPINE BESYLATE
     Indication: HYPERTENSION
     Route: 048
     Dates: start: 2010
  7. BAYER ASPIRIN [Concomitant]
     Active Substance: ASPIRIN
     Indication: CARDIOVASCULAR EVENT PROPHYLAXIS
     Route: 048
     Dates: start: 2010
  8. MAVIRET [Suspect]
     Active Substance: GLECAPREVIR\PIBRENTASVIR
     Indication: CHRONIC HEPATITIS C
     Route: 048
     Dates: start: 20200422, end: 20200616
  9. VIGAMOX [Concomitant]
     Active Substance: MOXIFLOXACIN HYDROCHLORIDE
     Indication: OPEN GLOBE INJURY
     Route: 050
     Dates: start: 20200326

REACTIONS (1)
  - Retinal detachment [Recovering/Resolving]

NARRATIVE: CASE EVENT DATE: 20200506
